FAERS Safety Report 8514753-4 (Version None)
Quarter: 2012Q3

REPORT INFORMATION
  Report Type: 
  Country: None (occurrence: None)
  Receive Date: 20120717
  Receipt Date: 20110906
  Transmission Date: 20120928
  Serious: No
  Sender: FDA-Public Use
  Company Number: US-COVIDIEN/TYCO HEALTHCARE/MALLINCKRODT-T201101795

PATIENT
  Age: 58 Year
  Sex: Male

DRUGS (8)
  1. LIDOCAINE [Concomitant]
     Indication: BACK PAIN
     Dosage: UNK
  2. MORPHINE SULFATE [Concomitant]
     Dosage: 15 MG, BID
     Dates: start: 20110101, end: 20110101
  3. VICODIN [Concomitant]
     Dosage: 5/325 MG Q4-6 HRS
  4. MORPHINE [Suspect]
     Indication: PAIN
  5. MORPHINE [Suspect]
     Indication: INTERVERTEBRAL DISC PROTRUSION
     Dosage: 15 MG Q 9HRS
     Route: 048
     Dates: start: 20110901, end: 20110904
  6. ASPIRIN [Concomitant]
     Dosage: UNK
  7. MIRALAX [Concomitant]
     Dosage: UNK
  8. CELEBREX [Concomitant]
     Dosage: 200 MG, BID

REACTIONS (3)
  - DRUG EFFECT DELAYED [None]
  - DRUG EFFECT DECREASED [None]
  - CONSTIPATION [None]
